FAERS Safety Report 7271523-5 (Version None)
Quarter: 2011Q1

REPORT INFORMATION
  Report Type: 
  Country: None (occurrence: None)
  Receive Date: 20110128
  Receipt Date: 20110128
  Transmission Date: 20110831
  Serious: No
  Sender: FDA-Public Use
  Company Number: None

PATIENT
  Age: 84 Year
  Sex: Female

DRUGS (1)
  1. FENTANYL-100 [Suspect]
     Indication: BACK PAIN
     Dosage: APPLY 1 PATCH EVERY 3 DAYS

REACTIONS (3)
  - DEPRESSED LEVEL OF CONSCIOUSNESS [None]
  - BACK PAIN [None]
  - DYSKINESIA [None]
